FAERS Safety Report 15236778 (Version 1)
Quarter: 2018Q3

REPORT INFORMATION
  Report Type: Spontaneous
  Country: AU (occurrence: AU)
  Receive Date: 20180803
  Receipt Date: 20180803
  Transmission Date: 20181010
  Serious: Yes (Hospitalization, Other)
  Sender: FDA-Public Use
  Company Number: AU-TORRENT-00000275

PATIENT
  Age: 44 Year
  Sex: Female

DRUGS (7)
  1. QUETIAPINE. [Suspect]
     Active Substance: QUETIAPINE
     Indication: SOMATIC DELUSION
  2. CLOZAPINE. [Concomitant]
     Active Substance: CLOZAPINE
     Indication: SOMATIC DELUSION
     Dosage: UNKNOWN
  3. RISPERIDONE. [Suspect]
     Active Substance: RISPERIDONE
     Indication: SOMATIC DELUSION
     Dosage: UNKNOWN
  4. OLANZAPINE. [Suspect]
     Active Substance: OLANZAPINE
     Indication: SOMATIC DELUSION
     Dosage: UNKNOWN
  5. ESCITALOPRAM OXALATE. [Suspect]
     Active Substance: ESCITALOPRAM OXALATE
     Indication: SOMATIC DELUSION
  6. AMISULPRIDE [Suspect]
     Active Substance: AMISULPRIDE
     Indication: SOMATIC DELUSION
     Dosage: UNKNOWN
  7. CLOMIPRAMINE [Suspect]
     Active Substance: CLOMIPRAMINE
     Indication: SOMATIC DELUSION
     Dosage: UNKNOWN

REACTIONS (2)
  - Condition aggravated [Unknown]
  - Drug ineffective [Unknown]
